FAERS Safety Report 19969820 (Version 1)
Quarter: 2021Q4

REPORT INFORMATION
  Report Type: Other
  Country: IT (occurrence: IT)
  Receive Date: 20211019
  Receipt Date: 20211019
  Transmission Date: 20220303
  Serious: Yes (Hospitalization)
  Sender: FDA-Public Use
  Company Number: IT-COLLEGIUM PHARMACEUTICAL, INC.-2021CGM01107

PATIENT
  Age: 86 Year
  Sex: Female

DRUGS (10)
  1. TAPENTADOL [Suspect]
     Active Substance: TAPENTADOL
     Indication: Product used for unknown indication
     Dosage: 100 MG, 1X/DAY
     Dates: start: 20210101, end: 20210816
  2. FENTANYL [Suspect]
     Active Substance: FENTANYL
     Indication: Product used for unknown indication
     Dosage: 1.8 MG
     Dates: start: 20210101, end: 20210816
  3. QUETIAPINE [Suspect]
     Active Substance: QUETIAPINE
     Indication: Product used for unknown indication
     Dosage: UNK
     Dates: start: 20210101, end: 20210816
  4. NEURONTIN [Suspect]
     Active Substance: GABAPENTIN
     Indication: Product used for unknown indication
     Dosage: 100 MG, 1X/DAY
     Dates: start: 20210101, end: 20210816
  5. EDOXABAN TOSYLATE [Concomitant]
     Active Substance: EDOXABAN TOSYLATE
  6. FUROSEMIDE [Concomitant]
     Active Substance: FUROSEMIDE
  7. GLUCOPHAGE [Concomitant]
     Active Substance: METFORMIN HYDROCHLORIDE
  8. LEVOTHYROXINE SODIUM [Concomitant]
     Active Substance: LEVOTHYROXINE SODIUM
  9. PANTOPRAZOLE SODIUM [Concomitant]
     Active Substance: PANTOPRAZOLE SODIUM
  10. LOSARTAN POTASSIUM [Concomitant]
     Active Substance: LOSARTAN POTASSIUM

REACTIONS (2)
  - Drug interaction [Not Recovered/Not Resolved]
  - Sopor [Not Recovered/Not Resolved]

NARRATIVE: CASE EVENT DATE: 20210816
